FAERS Safety Report 6490992 (Version 24)
Quarter: 2013Q3

REPORT INFORMATION
  Report Type: Spontaneous
  Country: US (occurrence: US)
  Receive Date: 20071211
  Receipt Date: 20130712
  Transmission Date: 20140515
  Serious: Yes (Death, Hospitalization, Other)
  Sender: FDA-Public Use
  Company Number: PHEH2007US15651

PATIENT
  Age: 62 Year
  Sex: Female

DRUGS (48)
  1. ZOMETA [Suspect]
     Indication: BONE DISORDER
     Dosage: 4 MG, QW4
     Route: 042
     Dates: start: 20021016, end: 200510
  2. REMICADE [Concomitant]
  3. MEGACE [Concomitant]
  4. CHEMOTHERAPEUTICS NOS [Concomitant]
  5. PERIDEX [Concomitant]
  6. KENALOG [Concomitant]
  7. PLAQUENIL [Concomitant]
  8. FOLIC ACID [Concomitant]
  9. VITAMIN B6 [Concomitant]
  10. CENTRUM [Concomitant]
  11. BABY ASPIRIN [Concomitant]
  12. ABRAXANE [Concomitant]
  13. METOPROLOL [Concomitant]
  14. TAMOXIFEN [Concomitant]
  15. PREDNISONE [Concomitant]
  16. ZANTAC [Concomitant]
  17. FEMARA [Concomitant]
  18. CELEBREX [Concomitant]
  19. PAXIL [Concomitant]
  20. METHOTREXATE [Concomitant]
  21. FASLODEX [Concomitant]
  22. DOXIL [Concomitant]
  23. NEULASTA [Concomitant]
  24. XELODA [Concomitant]
  25. HALOTESTIN [Concomitant]
  26. TAXOTERE [Concomitant]
  27. TUBERCULIN PPD [Concomitant]
  28. METROGEL [Concomitant]
  29. CALCIUM [Concomitant]
  30. VITAMIN D [Concomitant]
  31. CENTRUM SILVER [Concomitant]
  32. ZOFRAN [Concomitant]
     Dosage: 4 MG, PRN
     Route: 048
  33. LOPRESSOR [Concomitant]
     Route: 048
  34. ROCEPHIN [Concomitant]
     Dosage: 1 G, UNK
  35. FLAGYL [Concomitant]
  36. ZYVOX [Concomitant]
  37. NAVELBINE ^GLAXO WELLCOME^ [Concomitant]
  38. AROMASIN [Concomitant]
  39. AMPICILLIN [Concomitant]
  40. DIGOXIN [Concomitant]
  41. ATIVAN [Concomitant]
  42. DILAUDID [Concomitant]
  43. LASIX [Concomitant]
     Dates: start: 20070416
  44. ARANESP [Concomitant]
  45. NEUPOPEG [Concomitant]
  46. ALOXI [Concomitant]
  47. DICODIN [Concomitant]
  48. NAVELBINE ^ASTA MEDICA^ [Concomitant]

REACTIONS (72)
  - Death [Fatal]
  - Sepsis [Unknown]
  - Cardiac failure congestive [Unknown]
  - Metastases to spine [Unknown]
  - Metastases to bone [Unknown]
  - Hepatic cancer [Unknown]
  - Appendicitis [Unknown]
  - Pneumonia [Unknown]
  - Chronic obstructive pulmonary disease [Unknown]
  - Pulmonary mass [Unknown]
  - Pleural effusion [Unknown]
  - Spinal column stenosis [Unknown]
  - Renal failure [Unknown]
  - Atrial fibrillation [Unknown]
  - Osteonecrosis of jaw [Recovering/Resolving]
  - Infection [Unknown]
  - Physical disability [Unknown]
  - Deformity [Unknown]
  - Pain [Unknown]
  - Emotional distress [Unknown]
  - Anxiety [Unknown]
  - Anaemia [Unknown]
  - Gait disturbance [Unknown]
  - Back pain [Unknown]
  - Breast prosthesis user [Unknown]
  - Nephrolithiasis [Unknown]
  - Kyphosis [Unknown]
  - Hordeolum [Unknown]
  - Osteomyelitis [Unknown]
  - Tongue ulceration [Unknown]
  - Bone disorder [Unknown]
  - Walking aid user [Unknown]
  - Appendicitis perforated [Unknown]
  - Myelodysplastic syndrome [Unknown]
  - Nodal osteoarthritis [Unknown]
  - Spinal compression fracture [Unknown]
  - Pelvi-ureteric obstruction [Unknown]
  - Nausea [Unknown]
  - Diarrhoea [Unknown]
  - Dehydration [Unknown]
  - Dysuria [Unknown]
  - Decreased appetite [Unknown]
  - Hyperkalaemia [Unknown]
  - Thrombocytopenia [Unknown]
  - Fatigue [Unknown]
  - Dermal cyst [Unknown]
  - Urinary tract infection enterococcal [Unknown]
  - Presbyacusis [Unknown]
  - Eustachian tube dysfunction [Unknown]
  - Diabetic ulcer [Unknown]
  - Hypogammaglobulinaemia [Unknown]
  - Varicose vein [Unknown]
  - Sleep apnoea syndrome [Unknown]
  - Depression [Unknown]
  - Staphylococcus test positive [Unknown]
  - Clostridium difficile colitis [Unknown]
  - Adenomatous polyposis coli [Unknown]
  - Bronchiectasis [Unknown]
  - Coeliac disease [Unknown]
  - Tooth loss [Unknown]
  - Pancytopenia [Unknown]
  - Diabetic enteropathy [Unknown]
  - Dizziness [Unknown]
  - Ascites [Unknown]
  - Lymphoma [Unknown]
  - Confusional state [Unknown]
  - Intervertebral disc space narrowing [Unknown]
  - Osteosclerosis [Unknown]
  - Spinal osteoarthritis [Unknown]
  - Arteriosclerosis [Unknown]
  - Arteriosclerosis coronary artery [Unknown]
  - Bladder wall calcification [Unknown]
